FAERS Safety Report 21516692 (Version 1)
Quarter: 2022Q4

REPORT INFORMATION
  Report Type: Spontaneous
  Country: FR (occurrence: FR)
  Receive Date: 20221027
  Receipt Date: 20221027
  Transmission Date: 20230112
  Serious: Yes (Hospitalization, Other)
  Sender: FDA-Public Use
  Company Number: FR-EMA-DD-20221006-116353-121750

PATIENT
  Age: 42 Year
  Sex: Female
  Weight: 75 kg

DRUGS (6)
  1. VALACYCLOVIR [Suspect]
     Active Substance: VALACYCLOVIR HYDROCHLORIDE
     Indication: Antiviral prophylaxis
     Dosage: 1000 MG, BID
     Route: 065
     Dates: start: 20171220, end: 20180830
  2. OBINUTUZUMAB [Suspect]
     Active Substance: OBINUTUZUMAB
     Indication: B-cell lymphoma
     Dosage: 1000 MG, CYC
     Route: 065
     Dates: start: 20171221
  3. BACTRIM [Suspect]
     Active Substance: SULFAMETHOXAZOLE\TRIMETHOPRIM
     Indication: Infection prophylaxis
     Dosage: 1 DF (UNIT), Z
     Route: 065
     Dates: start: 20171222, end: 20180830
  4. AVADOMIDE [Suspect]
     Active Substance: AVADOMIDE
     Indication: B-cell lymphoma
     Dosage: 3 MG, Z
     Route: 065
     Dates: start: 20171220
  5. CALCIUM CARBONATE\CHOLECALCIFEROL [Concomitant]
     Active Substance: CALCIUM CARBONATE\CHOLECALCIFEROL
     Indication: Vitamin supplementation
     Dosage: 1 DF (UNIT), 1D
     Route: 065
     Dates: start: 20180131
  6. IXPRIM [Concomitant]
     Active Substance: ACETAMINOPHEN\TRAMADOL HYDROCHLORIDE
     Indication: Fibromyalgia
     Dosage: 37.5/325 MG, AS NECESSARY
     Route: 065

REACTIONS (2)
  - Hepatic cytolysis [Recovered/Resolved]
  - Pyrexia [Recovered/Resolved]

NARRATIVE: CASE EVENT DATE: 20180830
